FAERS Safety Report 4977836-1 (Version None)
Quarter: 2006Q1

REPORT INFORMATION
  Report Type: 
  Country: None (occurrence: None)
  Receive Date: 20060215
  Receipt Date: 20050113
  Transmission Date: 20060701
  Serious: No
  Sender: FDA-Public Use
  Company Number: MC200500049

PATIENT
  Sex: Male

DRUGS (4)
  1. ANGIOMAX [Suspect]
     Dosage: SEE IMAGE
     Route: 042
     Dates: start: 20050112, end: 20050112
  2. ANGIOMAX [Suspect]
     Dosage: SEE IMAGE
     Route: 042
     Dates: start: 20050112
  3. HEPARIN [Concomitant]
  4. CONTRAST MEDIA [Concomitant]

REACTIONS (1)
  - STENT OCCLUSION [None]
